FAERS Safety Report 6257435-4 (Version None)
Quarter: 2009Q3

REPORT INFORMATION
  Report Type: 
  Country: None (occurrence: None)
  Receive Date: 20090706
  Receipt Date: 20090702
  Transmission Date: 20100115
  Serious: Yes (Hospitalization)
  Sender: FDA-Public Use
  Company Number: FR-WYE-G03973009

PATIENT
  Sex: Male
  Weight: 56 kg

DRUGS (4)
  1. TAZOCILLINE [Suspect]
     Indication: SEPTIC SHOCK
     Route: 042
     Dates: start: 20090424, end: 20090512
  2. TAZOCILLINE [Suspect]
     Indication: LUNG INFECTION
  3. CIPROFLOXACIN [Suspect]
     Indication: SEPTIC SHOCK
     Route: 042
     Dates: start: 20090424, end: 20090512
  4. CIPROFLOXACIN [Suspect]
     Indication: LUNG INFECTION

REACTIONS (2)
  - DUODENITIS [None]
  - HENOCH-SCHONLEIN PURPURA [None]
